FAERS Safety Report 9475116 (Version 1)
Quarter: 2013Q3

REPORT INFORMATION
  Report Type: Spontaneous
  Country: IN (occurrence: None)
  Receive Date: 20130820
  Receipt Date: 20130820
  Transmission Date: 20140515
  Serious: Yes (Life-Threatening, Hospitalization)
  Sender: FDA-Public Use
  Company Number: PD 189

PATIENT
  Age: 41 Year
  Sex: Female

DRUGS (6)
  1. MEFENAMIC ACID [Suspect]
     Indication: MENORRHAGIA
     Dosage: X3/DAY
     Route: 048
  2. MEFENAMIC ACID [Suspect]
     Indication: DYSMENORRHOEA
     Dosage: X3/DAY
     Route: 048
  3. AMLODIPINE [Concomitant]
  4. ATENOLOL [Concomitant]
  5. TRANEXAMIC ACID [Concomitant]
  6. MEFENAMIC ACID [Concomitant]

REACTIONS (1)
  - Acute myocardial infarction [None]
